FAERS Safety Report 6748634-3 (Version None)
Quarter: 2010Q2

REPORT INFORMATION
  Report Type: 
  Country: None (occurrence: None)
  Receive Date: 20100601
  Receipt Date: 20100518
  Transmission Date: 20101027
  Serious: Yes (Hospitalization, Other)
  Sender: FDA-Public Use
  Company Number: BR-BAYER-201014867LA

PATIENT
  Age: 55 Year
  Sex: Male
  Weight: 70 kg

DRUGS (6)
  1. NEXAVAR [Suspect]
     Indication: HEPATIC NEOPLASM MALIGNANT
     Dosage: TOTAL DAILY DOSE: 400 MG  UNIT DOSE: 200 MG
     Route: 048
     Dates: start: 20091101
  2. GLUCOFORMIN [Concomitant]
     Indication: DIABETES MELLITUS
     Dosage: TOTAL DAILY DOSE: 2550 MG  UNIT DOSE: 850 MG
     Dates: start: 20070101
  3. LASIX [Concomitant]
     Indication: DIURETIC THERAPY
     Dosage: TOTAL DAILY DOSE: 40 MG  UNIT DOSE: 40 MG
     Route: 048
     Dates: start: 20100305
  4. PANTOPRAZOLE [Concomitant]
     Indication: PROPHYLAXIS
     Route: 048
  5. ALDACTONE [Concomitant]
     Indication: DIURETIC THERAPY
     Dosage: TOTAL DAILY DOSE: 100 MG  UNIT DOSE: 100 MG
     Route: 048
     Dates: start: 20100305
  6. NEO FOLICO [Concomitant]
     Indication: ANAEMIA
     Route: 048
     Dates: start: 20100305

REACTIONS (6)
  - DYSGEUSIA [None]
  - DYSPHONIA [None]
  - FLUID RETENTION [None]
  - HYPOACUSIS [None]
  - NAUSEA [None]
  - SKIN HYPERTROPHY [None]
